FAERS Safety Report 14848234 (Version 2)
Quarter: 2018Q2

REPORT INFORMATION
  Report Type: Report from Study
  Country: US (occurrence: US)
  Receive Date: 20180504
  Receipt Date: 20180523
  Transmission Date: 20180711
  Serious: No
  Sender: FDA-Public Use
  Company Number: US-IPSEN BIOPHARMACEUTICALS, INC.-2017-08424

PATIENT
  Age: 15 Year
  Sex: Female
  Weight: 35.38 kg

DRUGS (8)
  1. VALIUM [Concomitant]
     Active Substance: DIAZEPAM
     Route: 054
     Dates: start: 20170124
  2. DYSPORT [Suspect]
     Active Substance: ABOBOTULINUMTOXINA
     Indication: MUSCLE SPASTICITY
     Dosage: 500 UNITS
     Route: 030
     Dates: start: 20170303, end: 20170303
  3. MIRALAX [Concomitant]
     Active Substance: POLYETHYLENE GLYCOL 3350
     Indication: CONSTIPATION
     Dosage: AS NEEDED
     Dates: start: 20161119
  4. DYSPORT [Suspect]
     Active Substance: ABOBOTULINUMTOXINA
     Indication: OFF LABEL USE
     Dosage: 500 UNITS
     Route: 030
     Dates: start: 20170616, end: 20170616
  5. KEPPRA [Concomitant]
     Active Substance: LEVETIRACETAM
     Indication: SEIZURE
     Dates: start: 20170124
  6. PREVACID [Concomitant]
     Active Substance: LANSOPRAZOLE
     Indication: GASTROOESOPHAGEAL REFLUX DISEASE
     Dates: start: 20161119
  7. BACLOFEN. [Concomitant]
     Active Substance: BACLOFEN
     Dates: start: 20170509
  8. ROBINUL [Concomitant]
     Active Substance: GLYCOPYRROLATE
     Indication: SALIVARY HYPERSECRETION
     Dates: start: 20170124

REACTIONS (2)
  - Off label use [Unknown]
  - Ear infection [Recovered/Resolved]

NARRATIVE: CASE EVENT DATE: 20171114
